FAERS Safety Report 6753731-2 (Version None)
Quarter: 2010Q2

REPORT INFORMATION
  Report Type: 
  Country: None (occurrence: None)
  Receive Date: 20100603
  Receipt Date: 20100524
  Transmission Date: 20101027
  Serious: Yes (Other)
  Sender: FDA-Public Use
  Company Number: IN-ROCHE-704863

PATIENT
  Age: 34 Year
  Sex: Female

DRUGS (7)
  1. ALL-TRANS-RETINOIC ACID [Suspect]
     Route: 065
  2. ALL-TRANS-RETINOIC ACID [Suspect]
     Route: 065
  3. ALL-TRANS-RETINOIC ACID [Suspect]
     Dosage: CONSOLIDATION THERAPY
     Route: 065
  4. ALL-TRANS-RETINOIC ACID [Suspect]
     Dosage: MAINTAINENCE THERAPY;  FOR 15 DAYS EVERY 3 MONTHS
     Route: 065
  5. ARSENIC TRIOXIDE [Suspect]
     Route: 065
  6. ARSENIC TRIOXIDE [Suspect]
     Route: 065
  7. ARSENIC TRIOXIDE [Suspect]
     Dosage: CONSOLIDATION THERAPY
     Route: 065

REACTIONS (1)
  - LEUKOPENIA [None]
